FAERS Safety Report 15127328 (Version 1)
Quarter: 2018Q3

REPORT INFORMATION
  Report Type: Spontaneous
  Country: US (occurrence: US)
  Receive Date: 20180710
  Receipt Date: 20180710
  Transmission Date: 20181010
  Serious: Yes (Other)
  Sender: FDA-Public Use
  Company Number: US-BAYER-2018-124932

PATIENT
  Age: 23 Year
  Sex: Female

DRUGS (2)
  1. ANTICOAGULANT CIT PHOS DEX ADENINE [Suspect]
     Active Substance: CITRIC ACID MONOHYDRATE\DEXTROSE\SODIUM CITRATE\SODIUM PHOSPHATE, MONOBASIC
     Dosage: UNK
     Dates: start: 20180618
  2. MIRENA [Suspect]
     Active Substance: LEVONORGESTREL
     Indication: CONTRACEPTION
     Dosage: 20 MCG/24HR, CONT
     Route: 015
     Dates: start: 2016

REACTIONS (4)
  - Cerebrovascular accident [Unknown]
  - Menstrual disorder [Not Recovered/Not Resolved]
  - Oligomenorrhoea [Unknown]
  - Menorrhagia [Not Recovered/Not Resolved]

NARRATIVE: CASE EVENT DATE: 20180620
